FAERS Safety Report 17838793 (Version 2)
Quarter: 2020Q2

REPORT INFORMATION
  Report Type: Report from Study
  Country: None (occurrence: US)
  Receive Date: 20200528
  Receipt Date: 20200628
  Transmission Date: 20200714
  Serious: Yes (Other)
  Sender: FDA-Public Use
  Company Number: US-ABBVIE-20K-163-3345792-00

PATIENT
  Age: 82 Year
  Sex: Male
  Weight: 74 kg

DRUGS (5)
  1. HUMIRA [Suspect]
     Active Substance: ADALIMUMAB
     Indication: CROHN^S DISEASE
     Route: 058
  2. ALBUTEROL PRN [Concomitant]
     Indication: PRODUCT USED FOR UNKNOWN INDICATION
  3. LIPITOR [Concomitant]
     Active Substance: ATORVASTATIN CALCIUM
     Indication: BLOOD TRIGLYCERIDES
  4. BABY ASPIRIN [Concomitant]
     Active Substance: ASPIRIN
     Indication: BLOOD TRIGLYCERIDES
  5. VITAMIN B12 [Concomitant]
     Active Substance: CYANOCOBALAMIN
     Indication: CROHN^S DISEASE

REACTIONS (7)
  - Stent removal [Recovered/Resolved]
  - Jaundice [Not Recovered/Not Resolved]
  - Haemorrhage [Recovered/Resolved]
  - Pancreatitis acute [Recovered/Resolved]
  - Biliary sphincterotomy [Recovering/Resolving]
  - Stent placement [Recovering/Resolving]
  - Stent placement [Recovered/Resolved]

NARRATIVE: CASE EVENT DATE: 2019
